FAERS Safety Report 5167853-3 (Version None)
Quarter: 2006Q4

REPORT INFORMATION
  Report Type: 
  Country: None (occurrence: None)
  Receive Date: 20061208
  Receipt Date: 20061130
  Transmission Date: 20070319
  Serious: Yes (Other)
  Sender: FDA-Public Use
  Company Number: PHBS2006JP18664

PATIENT
  Age: 60 Year
  Sex: Male

DRUGS (2)
  1. VOLTAREN [Suspect]
     Indication: ARTHROPATHY
     Route: 054
  2. LOXONIN [Suspect]
     Indication: ARTHROPATHY
     Route: 048

REACTIONS (1)
  - COLITIS ULCERATIVE [None]
